FAERS Safety Report 17863155 (Version 1)
Quarter: 2020Q2

REPORT INFORMATION
  Report Type: Spontaneous
  Country: US (occurrence: US)
  Receive Date: 20200604
  Receipt Date: 20200604
  Transmission Date: 20200714
  Serious: No
  Sender: FDA-Public Use
  Company Number: US-FOUNDATIONCONSUMERHC-2020-US-003288

PATIENT
  Age: 40 Year
  Sex: Female
  Weight: 77.11 kg

DRUGS (1)
  1. NEXT CHOICE [Suspect]
     Active Substance: LEVONORGESTREL
     Indication: POST COITAL CONTRACEPTION
     Dosage: 1.5 MG X 4 DOSES
     Route: 048
     Dates: start: 2017, end: 20200207

REACTIONS (7)
  - Dysmenorrhoea [Not Recovered/Not Resolved]
  - Emotional disorder [Not Recovered/Not Resolved]
  - Dizziness [Not Recovered/Not Resolved]
  - Breast tenderness [Not Recovered/Not Resolved]
  - Nausea [Not Recovered/Not Resolved]
  - Headache [Not Recovered/Not Resolved]
  - Anxiety [Not Recovered/Not Resolved]

NARRATIVE: CASE EVENT DATE: 20200207
